FAERS Safety Report 8122016-4 (Version None)
Quarter: 2012Q1

REPORT INFORMATION
  Report Type: 
  Country: None (occurrence: None)
  Receive Date: 20120208
  Receipt Date: 20120206
  Transmission Date: 20120608
  Serious: Yes (Hospitalization)
  Sender: FDA-Public Use
  Company Number: IT-ROCHE-645512

PATIENT
  Sex: Male
  Weight: 67 kg

DRUGS (6)
  1. AVASTIN [Suspect]
     Indication: COLORECTAL CANCER METASTATIC
     Dosage: ROUTE: EV. LAST DOSE PRIOR TO SAE: 03 JUL 2009.
     Route: 042
     Dates: start: 20090522, end: 20090724
  2. XELODA [Suspect]
     Indication: COLORECTAL CANCER METASTATIC
     Dosage: FREQUENCY: D1 - 15, LAST DOSE PRIOR TO SAE: 03 JUL 2009.
     Route: 048
     Dates: start: 20090522, end: 20090724
  3. XELODA [Suspect]
     Dosage: PERMANENTLY DISCONTINUED
     Route: 048
  4. AVASTIN [Suspect]
     Dosage: PERMANENTLY DISCONTINUED.
     Route: 042
  5. OXALIPLATIN [Suspect]
     Indication: COLORECTAL CANCER METASTATIC
     Dosage: ROUTE: EV. LAST DOSE PRIOR TO SAE: 03 JULY 2009
     Route: 042
     Dates: start: 20090522, end: 20090724
  6. OXALIPLATIN [Suspect]
     Dosage: PERMANENTLY DISCONTINUED
     Route: 042

REACTIONS (5)
  - PULMONARY EMBOLISM [None]
  - RENAL FAILURE ACUTE [None]
  - INFECTIOUS PERITONITIS [None]
  - ABSCESS [None]
  - SUBILEUS [None]
